FAERS Safety Report 5313561-5 (Version None)
Quarter: 2007Q2

REPORT INFORMATION
  Report Type: 
  Country: None (occurrence: None)
  Receive Date: 20070424
  Receipt Date: 20070413
  Transmission Date: 20071010
  Serious: Yes (Hospitalization)
  Sender: FDA-Public Use
  Company Number: 155245ISR

PATIENT
  Age: 30 Year
  Sex: Male

DRUGS (2)
  1. SERTRALINE [Suspect]
     Indication: SCHIZOPHRENIA
  2. CLOZAPINE [Suspect]
     Indication: SCHIZOPHRENIA
     Dosage: SEE IMAGE

REACTIONS (2)
  - ERUCTATION [None]
  - ILEUS PARALYTIC [None]
